FAERS Safety Report 14754646 (Version 1)
Quarter: 2018Q2

REPORT INFORMATION
  Report Type: Spontaneous
  Country: FR (occurrence: FR)
  Receive Date: 20180413
  Receipt Date: 20180413
  Transmission Date: 20180711
  Serious: Yes (Life-Threatening)
  Sender: FDA-Public Use
  Company Number: FR-TEVA-2018-FR-880986

PATIENT
  Age: 51 Year
  Sex: Female

DRUGS (9)
  1. ZOPICLONE [Concomitant]
     Active Substance: ZOPICLONE
     Dosage: 7.5 MILLIGRAM DAILY;
     Route: 048
  2. SERTRALINE [Suspect]
     Active Substance: SERTRALINE HYDROCHLORIDE
     Route: 048
  3. OXAZEPAM. [Concomitant]
     Active Substance: OXAZEPAM
     Dosage: 6 DOSAGE FORMS DAILY;
     Route: 048
  4. BUPRENORPHINE. [Concomitant]
     Active Substance: BUPRENORPHINE
     Indication: DRUG DEPENDENCE
     Route: 048
  5. CANNABIS ET RESINE [Suspect]
     Active Substance: CANNABIS SATIVA SUBSP. INDICA TOP
     Route: 045
  6. COCAINE [Suspect]
     Active Substance: COCAINE
     Route: 042
  7. LOXAPINE BASE [Suspect]
     Active Substance: LOXAPINE
     Dosage: 2 DOSAGE FORMS DAILY;
     Route: 048
  8. NORSET [Concomitant]
     Active Substance: MIRTAZAPINE
     Dosage: 2 DOSAGE FORMS DAILY;
     Route: 048
  9. THERALENE [Concomitant]
     Active Substance: TRIMEPRAZINE
     Dosage: 2 DOSAGE FORMS DAILY; TABLET COATED SCORED
     Route: 048

REACTIONS (4)
  - Hyperthermia [Recovered/Resolved]
  - Generalised tonic-clonic seizure [Recovered/Resolved with Sequelae]
  - Rhabdomyolysis [Recovering/Resolving]
  - Extrapyramidal disorder [Recovered/Resolved]
